FAERS Safety Report 10570128 (Version 1)
Quarter: 2014Q4

REPORT INFORMATION
  Report Type: Spontaneous
  Country: US (occurrence: None)
  Receive Date: 20141105
  Receipt Date: 20141105
  Transmission Date: 20150529
  Serious: Yes (Hospitalization)
  Sender: FDA-Public Use
  Company Number: RAP-0162-2014

PATIENT
  Age: 14 Year
  Sex: Male
  Weight: 46.7 kg

DRUGS (12)
  1. OXCARBAZEPINE. [Concomitant]
     Active Substance: OXCARBAZEPINE
  2. FAMOLIDINE [Concomitant]
  3. PREDNISONE. [Concomitant]
     Active Substance: PREDNISONE
  4. PROCYSBI DELAYED-RELEASE [Suspect]
     Active Substance: CYSTEAMINE BITARTRATE
     Indication: CYSTINOSIS
     Dosage: 1500 MG
     Route: 048
     Dates: start: 20141002
  5. FCSO4 [Concomitant]
  6. FLUTICASONE NASAL SPRAY [Concomitant]
     Active Substance: FLUTICASONE\FLUTICASONE PROPIONATE
  7. TACROLIMUS. [Concomitant]
     Active Substance: TACROLIMUS
  8. ARIPIPRAZOLE. [Concomitant]
     Active Substance: ARIPIPRAZOLE
  9. CETIRAZINE [Concomitant]
  10. MYCOPHENOLATE [Concomitant]
     Active Substance: MYCOPHENOLIC ACID
  11. MIRALAX POWDER [Concomitant]
  12. MAGNESIUM OXIDE. [Concomitant]
     Active Substance: MAGNESIUM OXIDE

REACTIONS (1)
  - Dehydration [None]

NARRATIVE: CASE EVENT DATE: 20141002
